FAERS Safety Report 19858110 (Version 1)
Quarter: 2021Q3

REPORT INFORMATION
  Report Type: Spontaneous
  Country: US (occurrence: US)
  Receive Date: 20210921
  Receipt Date: 20210921
  Transmission Date: 20211014
  Serious: No
  Sender: FDA-Public Use
  Company Number: US-TEVA-2021-US-1954020

PATIENT
  Sex: Female

DRUGS (2)
  1. AJOVY [Suspect]
     Active Substance: FREMANEZUMAB-VFRM
  2. AJOVY [Suspect]
     Active Substance: FREMANEZUMAB-VFRM
     Indication: PRODUCT USED FOR UNKNOWN INDICATION
     Route: 065

REACTIONS (11)
  - Myalgia [Unknown]
  - Vertigo [Unknown]
  - Balance disorder [Unknown]
  - Headache [Unknown]
  - Nystagmus [Unknown]
  - Injection site pain [Unknown]
  - Hypoaesthesia [Unknown]
  - Movement disorder [Unknown]
  - Injection site paraesthesia [Unknown]
  - Pain in extremity [Unknown]
  - Neck pain [Unknown]
